FAERS Safety Report 17150176 (Version 1)
Quarter: 2019Q4

REPORT INFORMATION
  Report Type: Report from Study
  Country: US (occurrence: US)
  Receive Date: 20191213
  Receipt Date: 20191213
  Transmission Date: 20200122
  Serious: Yes (Death)
  Sender: FDA-Public Use
  Company Number: US-ROCHE-2464906

PATIENT
  Sex: Female
  Weight: 74.46 kg

DRUGS (8)
  1. ALLEGRA [Concomitant]
     Active Substance: FEXOFENADINE HYDROCHLORIDE
     Route: 048
  2. PROAIR HFA [Concomitant]
     Active Substance: ALBUTEROL SULFATE
     Dosage: 90MCG/INH, 1 PUFF
     Route: 065
  3. SPIRIVA [Concomitant]
     Active Substance: TIOTROPIUM BROMIDE MONOHYDRATE
     Dosage: 1 PUFF
     Route: 048
  4. SINGULAIR [Concomitant]
     Active Substance: MONTELUKAST SODIUM
     Route: 048
  5. BUSPIRON [BUSPIRONE HYDROCHLORIDE] [Concomitant]
     Active Substance: BUSPIRONE HYDROCHLORIDE
     Route: 048
  6. XOLAIR [Suspect]
     Active Substance: OMALIZUMAB
     Indication: ASTHMA
     Route: 065
     Dates: start: 20180712
  7. MAXIDEX [Concomitant]
     Active Substance: DEXAMETHASONE
     Route: 065
  8. TELMISARTAN. [Concomitant]
     Active Substance: TELMISARTAN
     Route: 048

REACTIONS (1)
  - Death [Fatal]
